FAERS Safety Report 17571090 (Version 3)
Quarter: 2020Q2

REPORT INFORMATION
  Report Type: Report from Study
  Country: MX (occurrence: MX)
  Receive Date: 20200323
  Receipt Date: 20200426
  Transmission Date: 20200713
  Serious: Yes (Hospitalization, Disabling, Other)
  Sender: FDA-Public Use
  Company Number: PHHY2018MX092242

PATIENT
  Age: 69 Year
  Sex: Male
  Weight: 70 kg

DRUGS (7)
  1. ENTRESTO [Suspect]
     Active Substance: SACUBITRIL\VALSARTAN
     Dosage: 0.5 DF, QD
     Route: 048
  2. LEVOTHYROXINE. [Concomitant]
     Active Substance: LEVOTHYROXINE
     Indication: HYPOTHYROIDISM
     Dosage: 100 MG, QD (3/4) SIX YEARS AGO
     Route: 048
  3. ENTRESTO [Suspect]
     Active Substance: SACUBITRIL\VALSARTAN
     Indication: HYPERTENSION
     Dosage: 0.5 DF (50MG), BID
     Route: 048
     Dates: start: 2014
  4. ENTRESTO [Suspect]
     Active Substance: SACUBITRIL\VALSARTAN
     Indication: CARDIAC FAILURE
     Dosage: 1 DF (100MG. 49MG OF SACUBITRIL AND 51MG OF VALSARTAN), QD
     Route: 048
     Dates: start: 20170801, end: 20180201
  5. ALLOPURINOL. [Concomitant]
     Active Substance: ALLOPURINOL
     Indication: BLOOD URIC ACID
     Dosage: 300 MG, QD (0.5) SIX YEARS AGO
     Route: 048
  6. CONCOR [Concomitant]
     Active Substance: BISOPROLOL FUMARATE
     Indication: ARRHYTHMIA
     Dosage: 0.5 MG (0.25 MG) SIX YEARS AGO
     Route: 048
  7. PROCORALAN [Concomitant]
     Active Substance: IVABRADINE
     Indication: ARRHYTHMIA
     Dosage: 0.5 MG (5 MG) (SIX YEARS AGO, IN THE MORNING AND AT NIGHT)
     Route: 048

REACTIONS (11)
  - Renal disorder [Not Recovered/Not Resolved]
  - Prescribed underdose [Unknown]
  - Fluid retention [Recovered/Resolved]
  - Renal failure [Recovering/Resolving]
  - Cardiac dysfunction [Recovered/Resolved]
  - Inappropriate schedule of product administration [Unknown]
  - Product use in unapproved indication [Unknown]
  - Cardiac failure [Recovered/Resolved]
  - Peripheral swelling [Recovered/Resolved]
  - Disability [Recovering/Resolving]
  - Wrong technique in product usage process [Unknown]

NARRATIVE: CASE EVENT DATE: 20170801
